FAERS Safety Report 4842931-4 (Version None)
Quarter: 2005Q4

REPORT INFORMATION
  Report Type: 
  Country: None (occurrence: None)
  Receive Date: 20051130
  Receipt Date: 20051117
  Transmission Date: 20060501
  Serious: Yes (Other)
  Sender: FDA-Public Use
  Company Number: 2005158706

PATIENT
  Sex: 0

DRUGS (3)
  1. DIFLUCAN [Suspect]
     Indication: URINARY TRACT INFECTION FUNGAL
     Dosage: 100 MG
     Dates: start: 20051109, end: 20051115
  2. HOKUNALIN (TULOBUTEROL HYDROCHLORIDE) [Suspect]
     Indication: ASTHMA
  3. FLUITRAN (TRICHLORMETHIAZIDE) [Concomitant]

REACTIONS (2)
  - TORSADE DE POINTES [None]
  - VENTRICULAR TACHYCARDIA [None]
